FAERS Safety Report 8478254 (Version 6)
Quarter: 2012Q4

REPORT INFORMATION
  Report Type: 
  Country: US (occurrence: US)
  Receive Date: 20120327
  Receipt Date: 20121206
  Transmission Date: 20130627
  Serious: Yes (Hospitalization, Other)
  Sender: FDA-Public Use
  Company Number: US-ACTELION-A-NJ2012-62848

PATIENT
  Age: 55 Year
  Sex: Female

DRUGS (1)
  1. TRACLEER [Suspect]
     Indication: PULMONARY ARTERIAL HYPERTENSION
     Dosage: UNK
     Route: 048

REACTIONS (10)
  - Granulomatosis with polyangiitis [Unknown]
  - Pulmonary mass [Unknown]
  - Adrenal mass [Unknown]
  - Irritable bowel syndrome [Unknown]
  - Lymph node calcification [Unknown]
  - Blood potassium decreased [Unknown]
  - Pneumonia [Recovered/Resolved]
  - Chest pain [Recovered/Resolved]
  - Cough [Recovered/Resolved]
  - Dizziness [Unknown]
